FAERS Safety Report 22289346 (Version 1)
Quarter: 2023Q2

REPORT INFORMATION
  Report Type: Spontaneous
  Country: US (occurrence: None)
  Receive Date: 20230504
  Receipt Date: 20230504
  Transmission Date: 20230722
  Serious: No
  Sender: FDA-Public Use
  Company Number: None

PATIENT
  Age: 52 Year
  Sex: Female
  Weight: 83.25 kg

DRUGS (4)
  1. HIZENTRA [Suspect]
     Active Substance: HUMAN IMMUNOGLOBULIN G
     Indication: Multiple sclerosis
     Route: 058
  2. HIZENTRA [Suspect]
     Active Substance: HUMAN IMMUNOGLOBULIN G
     Indication: Multiple sclerosis
     Route: 058
  3. Diphenhydramine 25MG CAP [Concomitant]
  4. Acetaminophen 325MG TAB [Concomitant]

REACTIONS (3)
  - Abdominal pain [None]
  - Infusion related reaction [None]
  - Bowel movement irregularity [None]

NARRATIVE: CASE EVENT DATE: 20230427
